FAERS Safety Report 17266005 (Version 3)
Quarter: 2020Q2

REPORT INFORMATION
  Report Type: Report from Study
  Country: US (occurrence: US)
  Receive Date: 20200114
  Receipt Date: 20200513
  Transmission Date: 20200713
  Serious: No
  Sender: FDA-Public Use
  Company Number: NVSC2020US006280

PATIENT
  Age: 78 Year
  Sex: Female

DRUGS (1)
  1. BEOVU [Suspect]
     Active Substance: BROLUCIZUMAB-DBLL
     Indication: NEOVASCULAR AGE-RELATED MACULAR DEGENERATION
     Dosage: UNK
     Route: 047
     Dates: start: 20200108

REACTIONS (10)
  - Cough [Unknown]
  - Stress [Unknown]
  - Vision blurred [Unknown]
  - Eye pain [Recovered/Resolved]
  - Dry throat [Unknown]
  - Arthritis [Unknown]
  - Visual impairment [Unknown]
  - Ocular discomfort [Recovered/Resolved]
  - Visual acuity reduced [Unknown]
  - Emotional disorder [Unknown]

NARRATIVE: CASE EVENT DATE: 20200109
